FAERS Safety Report 9346981 (Version 1)
Quarter: 2013Q2

REPORT INFORMATION
  Report Type: Spontaneous
  Country: US (occurrence: US)
  Receive Date: 20130613
  Receipt Date: 20130613
  Transmission Date: 20140414
  Serious: Yes (Death)
  Sender: FDA-Public Use
  Company Number: US-BAYER-2013-071815

PATIENT
  Age: 96 Year
  Sex: Female
  Weight: 61.68 kg

DRUGS (1)
  1. PHILLIPS^ MILK OF MAGNESIA [Suspect]
     Indication: CONSTIPATION
     Dosage: ONE CAP, OM
     Route: 048
     Dates: end: 2010

REACTIONS (1)
  - Death [Fatal]
